FAERS Safety Report 6463285-6 (Version None)
Quarter: 2009Q4

REPORT INFORMATION
  Report Type: 
  Country: None (occurrence: None)
  Receive Date: 20091130
  Receipt Date: 20090615
  Transmission Date: 20100525
  Serious: Yes (Other)
  Sender: FDA-Public Use
  Company Number: US-AMGEN-QUU350137

PATIENT
  Sex: Female

DRUGS (3)
  1. ENBREL [Suspect]
     Indication: RHEUMATOID ARTHRITIS
     Route: 058
     Dates: start: 20071101
  2. UNSPECIFIED ANTIBIOTIC [Concomitant]
  3. PREDNISONE [Concomitant]

REACTIONS (9)
  - ANAPHYLACTIC REACTION [None]
  - ARTHRITIS [None]
  - DRUG HYPERSENSITIVITY [None]
  - DYSPNOEA [None]
  - FATIGUE [None]
  - GASTROINTESTINAL BACTERIAL INFECTION [None]
  - OEDEMA MOUTH [None]
  - SWOLLEN TONGUE [None]
  - URTICARIA [None]
